FAERS Safety Report 9667099 (Version 1)
Quarter: 2013Q4

REPORT INFORMATION
  Report Type: Spontaneous
  Country: US (occurrence: US)
  Receive Date: 20131104
  Receipt Date: 20131104
  Transmission Date: 20140711
  Serious: No
  Sender: FDA-Public Use
  Company Number: US-BIOGENIDEC-2013BI089828

PATIENT
  Age: 44 Year
  Sex: Female
  Weight: 83 kg

DRUGS (12)
  1. TECFIDERA [Suspect]
     Indication: PRODUCT USED FOR UNKNOWN INDICATION
     Route: 048
  2. TECFIDERA [Suspect]
     Indication: PRODUCT USED FOR UNKNOWN INDICATION
     Route: 048
  3. ZYRTEC [Concomitant]
  4. SYNTHROID [Concomitant]
  5. METFORMIN [Concomitant]
  6. SIMVASTATIN [Concomitant]
  7. ASPIRIN EC [Concomitant]
  8. VICTOZA [Concomitant]
  9. FLONASE SPRAY 0.05% [Concomitant]
  10. NECON [Concomitant]
  11. CALCIUM 500 [Concomitant]
  12. VITAMIN B3 [Concomitant]

REACTIONS (4)
  - Hyperhidrosis [Unknown]
  - Abdominal pain [Unknown]
  - Nausea [Unknown]
  - Dyspepsia [Unknown]
